FAERS Safety Report 5787257 (Version 3)
Quarter: 2020Q2

REPORT INFORMATION
  Report Type: Spontaneous
  Country: FR (occurrence: FR)
  Receive Date: 20050503
  Receipt Date: 20200512
  Transmission Date: 20200714
  Serious: Yes (Hospitalization)
  Sender: FDA-Public Use
  Company Number: FR-ROCHE-402957

PATIENT
  Age: 8 Year
  Sex: Female
  Weight: 21 kg

DRUGS (14)
  1. AMIKLIN [AMIKACIN SULFATE] [Suspect]
     Active Substance: AMIKACIN SULFATE
     Indication: PROPHYLAXIS
     Route: 042
     Dates: start: 20050218, end: 20050225
  2. MOPRAL [OMEPRAZOLE] [Concomitant]
     Active Substance: OMEPRAZOLE
  3. AMBISOME [Suspect]
     Active Substance: AMPHOTERICIN B
     Indication: PROPHYLAXIS
     Route: 042
     Dates: start: 20050220, end: 20050224
  4. MORPHINE [Concomitant]
     Active Substance: MORPHINE
  5. LASILIX [FUROSEMIDE] [Suspect]
     Active Substance: FUROSEMIDE
     Indication: POLYURIA
     Route: 042
     Dates: start: 20050209, end: 20050226
  6. PERFALGAN [Concomitant]
     Active Substance: ACETAMINOPHEN
  7. CYMEVAN [Suspect]
     Active Substance: GANCICLOVIR
     Indication: PROPHYLAXIS
     Dosage: FORMULATION REPORTED AS LYOPHILISED.
     Route: 042
     Dates: start: 20050220, end: 20050222
  8. FORTUM [CEFTAZIDIME] [Suspect]
     Active Substance: CEFTAZIDIME
     Indication: PROPHYLAXIS
     Route: 042
     Dates: start: 20050218
  9. ZOVIRAX [Suspect]
     Active Substance: ACYCLOVIR
     Indication: PRODUCT USED FOR UNKNOWN INDICATION
     Route: 065
     Dates: start: 20050216
  10. SPASFON [PHLOROGLUCINOL;TRIMETHYLPHLOROGLUCINOL] [Concomitant]
     Active Substance: PHLOROGLUCINOL\1,3,5-TRIMETHOXYBENZENE
  11. SOLU-MEDROL [Suspect]
     Active Substance: METHYLPREDNISOLONE SODIUM SUCCINATE
     Indication: PRODUCT USED FOR UNKNOWN INDICATION
     Dosage: FORMULATION REPORTED AS LYOPHILISED. STRENGTH REPORTED AS 20MG/2ML.
     Route: 042
     Dates: start: 20050205, end: 20050313
  12. HEPARIN SODIUM. [Concomitant]
     Active Substance: HEPARIN SODIUM
  13. VANCOMYCIN [Concomitant]
     Active Substance: VANCOMYCIN
  14. SANDOGLOBULIN [Concomitant]
     Active Substance: HUMAN IMMUNOGLOBULIN G

REACTIONS (4)
  - Intentional product use issue [Unknown]
  - Off label use [Unknown]
  - Bradycardia [Recovered/Resolved]
  - Hypokalaemia [Recovered/Resolved]

NARRATIVE: CASE EVENT DATE: 20050220
